FAERS Safety Report 24924793 (Version 1)
Quarter: 2025Q1

REPORT INFORMATION
  Report Type: Spontaneous
  Country: US (occurrence: US)
  Receive Date: 20250204
  Receipt Date: 20250204
  Transmission Date: 20250408
  Serious: No
  Sender: TARO
  Company Number: US-TARO PHARMACEUTICALS USA INC.-2024TAR02113

PATIENT
  Sex: Female

DRUGS (1)
  1. BENZOYL PEROXIDE\CLINDAMYCIN [Suspect]
     Active Substance: BENZOYL PEROXIDE\CLINDAMYCIN
     Indication: Acne
     Dosage: UNK, OD
     Route: 061
     Dates: start: 202410, end: 202410

REACTIONS (5)
  - Pallor [Recovering/Resolving]
  - Lip blister [Recovering/Resolving]
  - Burns first degree [Recovering/Resolving]
  - Swelling [Recovering/Resolving]
  - Skin exfoliation [Recovering/Resolving]

NARRATIVE: CASE EVENT DATE: 20241001
